FAERS Safety Report 7093838-6 (Version None)
Quarter: 2010Q4

REPORT INFORMATION
  Report Type: 
  Country: None (occurrence: None)
  Receive Date: 20101110
  Receipt Date: 20101105
  Transmission Date: 20110411
  Serious: Yes (Other)
  Sender: FDA-Public Use
  Company Number: A0868681A

PATIENT
  Age: 34 Year
  Sex: Female

DRUGS (3)
  1. LAMICTAL [Suspect]
     Dosage: 50MG PER DAY
     Route: 048
     Dates: start: 20100503, end: 20100531
  2. KLONOPIN [Concomitant]
  3. AMBIEN [Concomitant]

REACTIONS (5)
  - CRYING [None]
  - HOMICIDAL IDEATION [None]
  - OFF LABEL USE [None]
  - SUICIDAL IDEATION [None]
  - WITHDRAWAL SYNDROME [None]
